FAERS Safety Report 14561341 (Version 6)
Quarter: 2019Q2

REPORT INFORMATION
  Report Type: Spontaneous
  Country: US (occurrence: US)
  Receive Date: 20180222
  Receipt Date: 20190409
  Transmission Date: 20190711
  Serious: No
  Sender: FDA-Public Use
  Company Number: US-PFIZER INC-2018074896

PATIENT
  Age: 64 Year
  Sex: Female

DRUGS (3)
  1. ELELYSO [Suspect]
     Active Substance: TALIGLUCERASE ALFA
     Indication: GAUCHER^S DISEASE
     Dosage: 3400 IU, ONCE EVERY 2 WEEKS
     Route: 042
     Dates: start: 201007
  2. WATER BACTERIOSTATIC [Suspect]
     Active Substance: WATER
     Dosage: UNK
  3. SODIUM CHLORIDE. [Suspect]
     Active Substance: SODIUM CHLORIDE
     Dosage: UNK

REACTIONS (12)
  - Product preparation issue [Unknown]
  - Blood pressure increased [Recovering/Resolving]
  - Varicose vein [Unknown]
  - Productive cough [Unknown]
  - Increased upper airway secretion [Unknown]
  - Spinal osteoarthritis [Unknown]
  - Pain in extremity [Unknown]
  - Mucous stools [Unknown]
  - Impaired healing [Unknown]
  - Immune system disorder [Unknown]
  - Peripheral swelling [Unknown]
  - Flatulence [Unknown]

NARRATIVE: CASE EVENT DATE: 20160804
